FAERS Safety Report 21848082 (Version 1)
Quarter: 2023Q1

REPORT INFORMATION
  Report Type: Spontaneous
  Country: US (occurrence: US)
  Receive Date: 20230111
  Receipt Date: 20230111
  Transmission Date: 20230418
  Serious: Yes (Hospitalization, Other)
  Sender: FDA-Public Use
  Company Number: US-UPSHER-SMITH LABORATORIES, LLC-2023USL00005

PATIENT
  Sex: Female
  Weight: 50.34 kg

DRUGS (3)
  1. ISOTRETINOIN [Suspect]
     Active Substance: ISOTRETINOIN
     Indication: Acne
     Dosage: 30 MG, 2X/DAY
     Dates: start: 20220606, end: 2022
  2. ISOTRETINOIN [Suspect]
     Active Substance: ISOTRETINOIN
     Indication: Acne
     Dosage: UNK
     Dates: start: 20221209, end: 202212
  3. TYLENOL [Suspect]
     Active Substance: ACETAMINOPHEN
     Dosage: 5 PILLS OVER THE COURSE OF 10 MINUTES

REACTIONS (5)
  - Mental disorder [Unknown]
  - Intentional overdose [Recovered/Resolved]
  - Suicide attempt [Recovered/Resolved]
  - Suicidal ideation [Unknown]
  - Swelling face [Unknown]

NARRATIVE: CASE EVENT DATE: 20220101
